FAERS Safety Report 9647827 (Version 2)
Quarter: 2014Q1

REPORT INFORMATION
  Report Type: Spontaneous
  Country: US (occurrence: US)
  Receive Date: 20131028
  Receipt Date: 20140130
  Transmission Date: 20141002
  Serious: Yes (Other)
  Sender: FDA-Public Use
  Company Number: US-PFIZER INC-2013303345

PATIENT
  Age: 55 Year
  Sex: Male

DRUGS (3)
  1. INLYTA [Suspect]
     Indication: RENAL CELL CARCINOMA
     Dosage: 5 MG, 2X/DAY
     Route: 048
     Dates: start: 20130905
  2. INLYTA [Suspect]
     Dosage: 7 MG, 2X/DAY
     Route: 048
     Dates: start: 20130905
  3. INLYTA [Suspect]
     Dosage: 7 MG, 2X/DAY
     Route: 048

REACTIONS (4)
  - Abasia [Unknown]
  - Pain in extremity [Unknown]
  - Pain [Unknown]
  - Rash [Unknown]
